FAERS Safety Report 7767797-4 (Version None)
Quarter: 2011Q3

REPORT INFORMATION
  Report Type: 
  Country: None (occurrence: None)
  Receive Date: 20110922
  Receipt Date: 20100830
  Transmission Date: 20111222
  Serious: No
  Sender: FDA-Public Use
  Company Number: US-ASTRAZENECA-2010SE40703

PATIENT
  Age: 435 Month
  Sex: Male

DRUGS (3)
  1. LEXAPRO [Concomitant]
  2. SEROQUEL XR [Suspect]
     Indication: POST-TRAUMATIC STRESS DISORDER
     Route: 048
     Dates: start: 20100701, end: 20100801
  3. PRAVASTATIN [Concomitant]
     Dates: start: 20050101

REACTIONS (4)
  - ANGER [None]
  - ANXIETY [None]
  - AGGRESSION [None]
  - DRUG DOSE OMISSION [None]
